FAERS Safety Report 18917088 (Version 3)
Quarter: 2021Q2

REPORT INFORMATION
  Report Type: Spontaneous
  Country: BR (occurrence: BR)
  Receive Date: 20210219
  Receipt Date: 20210521
  Transmission Date: 20210717
  Serious: Yes (Hospitalization, Other)
  Sender: FDA-Public Use
  Company Number: BR-BRISTOL-MYERS SQUIBB COMPANY-BMS-2021-014431

PATIENT
  Age: 59 Year
  Sex: Female

DRUGS (2)
  1. NIVOLUMAB [Suspect]
     Active Substance: NIVOLUMAB
     Indication: METASTATIC MALIGNANT MELANOMA
     Dosage: 192 MILLIGRAM
     Route: 042
     Dates: start: 20201124, end: 202101
  2. IPILIMUMAB [Suspect]
     Active Substance: IPILIMUMAB
     Indication: METASTATIC MALIGNANT MELANOMA
     Dosage: 64 MILLIGRAM
     Route: 042
     Dates: start: 20201124, end: 202101

REACTIONS (7)
  - Myocarditis [Unknown]
  - Pneumonitis [Unknown]
  - Vitiligo [Unknown]
  - Serositis [Unknown]
  - Intentional product use issue [Unknown]
  - Intestinal perforation [Unknown]
  - Septic shock [Unknown]

NARRATIVE: CASE EVENT DATE: 20210104
